FAERS Safety Report 14174381 (Version 2)
Quarter: 2017Q4

REPORT INFORMATION
  Report Type: Report from Study
  Country: US (occurrence: US)
  Receive Date: 20171109
  Receipt Date: 20171115
  Transmission Date: 20180321
  Serious: Yes (Death, Other)
  Sender: FDA-Public Use
  Company Number: US-PFIZER INC-2017011720

PATIENT
  Age: 44 Year
  Sex: Female

DRUGS (2)
  1. IBRANCE [Suspect]
     Active Substance: PALBOCICLIB
     Dosage: 75 MG, 1X/DAY
     Route: 048
     Dates: start: 20161207, end: 20171018
  2. IBRANCE [Suspect]
     Active Substance: PALBOCICLIB
     Indication: BREAST CANCER
     Dosage: 125 MG, 1X/DAY
     Route: 048
     Dates: start: 20161213, end: 20170102

REACTIONS (8)
  - Diarrhoea [Unknown]
  - Neoplasm progression [Unknown]
  - Red blood cell count decreased [Unknown]
  - Platelet count decreased [Unknown]
  - Fatigue [Unknown]
  - Pyrexia [Unknown]
  - Death [Fatal]
  - White blood cell count decreased [Unknown]

NARRATIVE: CASE EVENT DATE: 20171106
